FAERS Safety Report 7718652-7 (Version None)
Quarter: 2011Q3

REPORT INFORMATION
  Report Type: 
  Country: None (occurrence: None)
  Receive Date: 20110830
  Receipt Date: 20110819
  Transmission Date: 20111222
  Serious: Yes (Other)
  Sender: FDA-Public Use
  Company Number: US-BAYER-201034263NA

PATIENT
  Age: 24 Year
  Sex: Female
  Weight: 81.633 kg

DRUGS (2)
  1. YAZ [Suspect]
     Route: 048
  2. YASMIN [Suspect]
     Dosage: UNK UNK, QD
     Route: 048
     Dates: start: 20060401, end: 20100101

REACTIONS (5)
  - CHOLECYSTECTOMY [None]
  - NAUSEA [None]
  - VOMITING [None]
  - ABDOMINAL PAIN UPPER [None]
  - CHOLELITHIASIS [None]
